FAERS Safety Report 6221589-6 (Version None)
Quarter: 2009Q2

REPORT INFORMATION
  Report Type: 
  Country: None (occurrence: None)
  Receive Date: 20090610
  Receipt Date: 20081126
  Transmission Date: 20091009
  Serious: Yes (Other)
  Sender: FDA-Public Use
  Company Number: CA-JNJFOC-20081105092

PATIENT
  Sex: Female

DRUGS (1)
  1. TRAMACET [Suspect]
     Indication: PAIN
     Dosage: 1-2 TABLETS UP TO 4 PER DAY
     Route: 048

REACTIONS (4)
  - EXPIRED DRUG ADMINISTERED [None]
  - GASTROOESOPHAGEAL REFLUX DISEASE [None]
  - OEDEMA PERIPHERAL [None]
  - SWELLING FACE [None]
